FAERS Safety Report 13016258 (Version 2)
Quarter: 2017Q1

REPORT INFORMATION
  Report Type: Spontaneous
  Country: US (occurrence: US)
  Receive Date: 20161212
  Receipt Date: 20170303
  Transmission Date: 20170428
  Serious: Yes (Other)
  Sender: FDA-Public Use
  Company Number: US-JNJFOC-20161124392

PATIENT
  Age: 45 Year
  Sex: Female

DRUGS (1)
  1. XARELTO [Suspect]
     Active Substance: RIVAROXABAN
     Indication: THROMBOSIS PROPHYLAXIS
     Dosage: SAMPLES THAT LASTED 10-12 DAYS
     Route: 048
     Dates: start: 20141212, end: 20141218

REACTIONS (5)
  - Menorrhagia [Recovered/Resolved]
  - Epistaxis [Unknown]
  - Rectal haemorrhage [Unknown]
  - Incision site haemorrhage [Recovering/Resolving]
  - Off label use [Unknown]

NARRATIVE: CASE EVENT DATE: 201412
